FAERS Safety Report 7936584-6 (Version None)
Quarter: 2011Q4

REPORT INFORMATION
  Report Type: 
  Country: None (occurrence: None)
  Receive Date: 20111121
  Receipt Date: 20110928
  Transmission Date: 20120403
  Serious: Yes (Other)
  Sender: FDA-Public Use
  Company Number: 2011029910

PATIENT
  Sex: Male
  Weight: 88.4514 kg

DRUGS (1)
  1. BERINERT [Suspect]
     Indication: HEREDITARY ANGIOEDEMA
     Dosage: (2000 IU TOTAL)
     Dates: start: 20110927, end: 20110927

REACTIONS (1)
  - HEREDITARY ANGIOEDEMA [None]
